FAERS Safety Report 20429678 (Version 1)
Quarter: 2022Q1

REPORT INFORMATION
  Report Type: Report from Study
  Country: NL (occurrence: NL)
  Receive Date: 20220204
  Receipt Date: 20220204
  Transmission Date: 20220424
  Serious: Yes (Hospitalization)
  Sender: FDA-Public Use
  Company Number: NL-HOVON-HO146-PAT0006-SAE02

PATIENT

DRUGS (10)
  1. ONCASPAR [Suspect]
     Active Substance: PEGASPARGASE
     Indication: B precursor type acute leukaemia
     Dosage: 2025 IU, UNK
     Route: 065
     Dates: start: 20190729, end: 20190812
  2. BLINATUMOMAB [Suspect]
     Active Substance: BLINATUMOMAB
     Indication: B precursor type acute leukaemia
     Dosage: 28 ?G, UNK
     Route: 065
     Dates: start: 20190612, end: 20190710
  3. CYTARABINE [Suspect]
     Active Substance: CYTARABINE
     Indication: B precursor type acute leukaemia
     Dosage: 120 MG, UNK
     Route: 065
     Dates: start: 20190826, end: 20190910
  4. DEXAMETHASONE PHOSPHATE [Suspect]
     Active Substance: DEXAMETHASONE PHOSPHATE
     Indication: B precursor type acute leukaemia
     Dosage: 10 MG, UNK
     Route: 065
     Dates: start: 20190726, end: 20190815
  5. DOXORUBICIN HYDROCHLORIDE [Suspect]
     Active Substance: DOXORUBICIN HYDROCHLORIDE
     Indication: B precursor type acute leukaemia
     Dosage: 50 MG, UNK
     Route: 065
     Dates: start: 20190726, end: 20190809
  6. ETOPOSIDE PHOSPHATE [Suspect]
     Active Substance: ETOPOSIDE PHOSPHATE
     Indication: B precursor type acute leukaemia
     Dosage: 300 MG, UNK
     Route: 065
     Dates: start: 20190826, end: 20190909
  7. METHOTREXATE SODIUM [Suspect]
     Active Substance: METHOTREXATE SODIUM
     Indication: B precursor type acute leukaemia
     Dosage: 15 MG, UNK
     Route: 065
     Dates: start: 20190726, end: 20190826
  8. PREDNISONE ACETATE [Suspect]
     Active Substance: PREDNISONE ACETATE
     Indication: B precursor type acute leukaemia
     Dosage: 25 MG, UNK
     Route: 065
     Dates: start: 20190726, end: 20190826
  9. THIOGUANINE [Suspect]
     Active Substance: THIOGUANINE
     Indication: B precursor type acute leukaemia
     Dosage: 120 MG, UNK
     Route: 065
     Dates: start: 20190826, end: 20190911
  10. VINBLASTINE [Suspect]
     Active Substance: VINBLASTINE
     Indication: B precursor type acute leukaemia
     Dosage: 10 MG, UNK
     Route: 065
     Dates: start: 20190726, end: 20190809

REACTIONS (1)
  - Phrenic nerve paralysis [Not Recovered/Not Resolved]

NARRATIVE: CASE EVENT DATE: 20190911
